FAERS Safety Report 5474374-7 (Version None)
Quarter: 2007Q4

REPORT INFORMATION
  Report Type: 
  Country: None (occurrence: None)
  Receive Date: 20071002
  Receipt Date: 20070924
  Transmission Date: 20080405
  Serious: Yes (Other)
  Sender: FDA-Public Use
  Company Number: PHEH2006US06975

PATIENT
  Age: 50 Year
  Sex: Female
  Weight: 188 kg

DRUGS (7)
  1. AREDIA [Suspect]
     Indication: BONE DISORDER
     Dosage: UNK, UNK
     Dates: start: 20000701, end: 20020301
  2. ZOMETA [Suspect]
     Indication: BONE DISORDER
     Dates: start: 20020301, end: 20050301
  3. ADRIAMYCIN PFS [Concomitant]
     Indication: BREAST CANCER METASTATIC
     Dates: start: 19990101
  4. RADIATION THERAPY [Concomitant]
     Dosage: 3500 CGY
     Dates: start: 19990624
  5. TAMOXIFEN CITRATE [Concomitant]
     Indication: BREAST CANCER
  6. XELODA [Concomitant]
     Indication: BREAST CANCER METASTATIC
  7. ANTINEOPLASTIC AGENTS [Concomitant]

REACTIONS (43)
  - ABSCESS DRAINAGE [None]
  - BACTERIA TISSUE SPECIMEN IDENTIFIED [None]
  - BONE DENSITY DECREASED [None]
  - BONE DEVELOPMENT ABNORMAL [None]
  - BONE DISORDER [None]
  - BONE TRIMMING [None]
  - CRANIAL NERVE DISORDER [None]
  - CYST [None]
  - DENTAL TREATMENT [None]
  - DYSPHAGIA [None]
  - EAR PAIN [None]
  - EMOTIONAL DISORDER [None]
  - ERYTHEMA [None]
  - EUSTACHIAN TUBE DYSFUNCTION [None]
  - FOREIGN BODY TRAUMA [None]
  - GINGIVAL INFECTION [None]
  - HYPERBARIC OXYGEN THERAPY [None]
  - HYPOAESTHESIA ORAL [None]
  - IMPAIRED HEALING [None]
  - INFLAMMATION [None]
  - INJURY [None]
  - JAW DISORDER [None]
  - LOOSE TOOTH [None]
  - LYMPHADENOPATHY [None]
  - MACROGLOSSIA [None]
  - MASS [None]
  - MOUTH HAEMORRHAGE [None]
  - MUCOSAL EROSION [None]
  - NASAL MUCOSAL DISORDER [None]
  - NODULE [None]
  - ORAL DISCOMFORT [None]
  - OSTEOMYELITIS CHRONIC [None]
  - OSTEONECROSIS [None]
  - PAIN [None]
  - PROSTHESIS IMPLANTATION [None]
  - RETCHING [None]
  - SINUS DISORDER [None]
  - TONGUE PARALYSIS [None]
  - TOOTH DISORDER [None]
  - TOOTH EXTRACTION [None]
  - TOOTH RESORPTION [None]
  - WOUND DEBRIDEMENT [None]
  - WOUND DEHISCENCE [None]
